FAERS Safety Report 18538598 (Version 8)
Quarter: 2023Q1

REPORT INFORMATION
  Report Type: Report from Study
  Country: IL (occurrence: IL)
  Receive Date: 20201124
  Receipt Date: 20230119
  Transmission Date: 20230417
  Serious: Yes (Death, Other)
  Sender: FDA-Public Use
  Company Number: NVSC2020IL196175

PATIENT
  Age: 80 Year
  Sex: Male

DRUGS (4)
  1. TAFINLAR [Suspect]
     Active Substance: DABRAFENIB MESYLATE
     Indication: Anaplastic thyroid cancer
     Dosage: 150 MG, BID
     Route: 048
     Dates: start: 20200701, end: 20211226
  2. TAFINLAR [Suspect]
     Active Substance: DABRAFENIB MESYLATE
     Dosage: 150 MG, BID
     Route: 048
     Dates: start: 20221009
  3. MEKINIST [Suspect]
     Active Substance: TRAMETINIB DIMETHYL SULFOXIDE
     Indication: Anaplastic thyroid cancer
     Dosage: 2 MG, QD
     Route: 048
     Dates: start: 20200701, end: 20211226
  4. MEKINIST [Suspect]
     Active Substance: TRAMETINIB DIMETHYL SULFOXIDE
     Dosage: 2 MG, QD
     Route: 048
     Dates: start: 20221009

REACTIONS (21)
  - Death [Fatal]
  - Loss of consciousness [Recovered/Resolved]
  - Syncope [Recovered/Resolved]
  - Lung neoplasm malignant [Not Recovered/Not Resolved]
  - Second primary malignancy [Unknown]
  - Temperature regulation disorder [Unknown]
  - Apathy [Not Recovered/Not Resolved]
  - Positron emission tomogram abnormal [Unknown]
  - Pyrexia [Recovered/Resolved]
  - Pyrexia [Recovered/Resolved]
  - Pyrexia [Recovered/Resolved]
  - Nausea [Recovered/Resolved]
  - Dizziness [Recovered/Resolved]
  - Asthenia [Not Recovered/Not Resolved]
  - Nausea [Recovered/Resolved]
  - Fatigue [Not Recovered/Not Resolved]
  - Decreased appetite [Not Recovered/Not Resolved]
  - Pyrexia [Recovered/Resolved]
  - Myalgia [Not Recovered/Not Resolved]
  - Pyrexia [Recovered/Resolved]
  - Inappropriate schedule of product administration [Recovered/Resolved]

NARRATIVE: CASE EVENT DATE: 20200701
